FAERS Safety Report 14735455 (Version 2)
Quarter: 2018Q2

REPORT INFORMATION
  Report Type: Report from Study
  Country: US (occurrence: US)
  Receive Date: 20180409
  Receipt Date: 20180509
  Transmission Date: 20180711
  Serious: No
  Sender: FDA-Public Use
  Company Number: PHEH2018US013566

PATIENT
  Sex: Female

DRUGS (2)
  1. COSENTYX [Suspect]
     Active Substance: SECUKINUMAB
     Indication: PSORIASIS
     Dosage: 300 MG, Q4W
     Route: 058
     Dates: start: 20180322
  2. COSENTYX [Suspect]
     Active Substance: SECUKINUMAB
     Dosage: 300 UNK, UNK
     Route: 058

REACTIONS (2)
  - Pruritus [Unknown]
  - Pain [Unknown]
